FAERS Safety Report 8958403 (Version 4)
Quarter: 2015Q2

REPORT INFORMATION
  Report Type: Spontaneous
  Country: JP (occurrence: JP)
  Receive Date: 20121210
  Receipt Date: 20150624
  Transmission Date: 20150821
  Serious: Yes (Hospitalization, Other)
  Sender: FDA-Public Use
  Company Number: JP-GLAXOSMITHKLINE-B0850595A

PATIENT
  Age: 16 Year
  Sex: Male

DRUGS (8)
  1. LEVOTOMIN [Concomitant]
     Active Substance: LEVOMEPROMAZINE
     Dosage: 10 MG, TID
     Dates: start: 20120907, end: 20120911
  2. AMOXAN [Concomitant]
     Active Substance: AMOXAPINE
     Dosage: 25 MG, TID
     Dates: start: 20120907, end: 20120911
  3. LAMOTRIGINE. [Suspect]
     Active Substance: LAMOTRIGINE
     Dosage: 25 MG, TID
     Route: 048
     Dates: start: 20120918, end: 20120920
  4. MYSLEE [Concomitant]
     Active Substance: ZOLPIDEM TARTRATE
     Dosage: 20 MG, 1D
  5. LAMOTRIGINE. [Suspect]
     Active Substance: LAMOTRIGINE
     Indication: BIPOLAR DISORDER
     Dosage: 25 MG, BID
     Route: 048
     Dates: start: 20120907, end: 20120917
  6. WINTERMIN [Concomitant]
     Active Substance: PROMAZINE
     Dosage: 100 MG, QD
     Dates: start: 20120907, end: 20120911
  7. VEGETAMIN-B [Concomitant]
     Active Substance: CHLORPROMAZINE HYDROCHLORIDE\PHENOBARBITAL\PROMETHAZINE
     Dosage: 2 DF, QD
     Dates: start: 20120907, end: 20120921
  8. GOODMIN [Concomitant]
     Active Substance: BROTIZOLAM
     Dosage: 0.5 MG, QD
     Dates: start: 20120907, end: 20120921

REACTIONS (36)
  - Drug reaction with eosinophilia and systemic symptoms [Recovering/Resolving]
  - Histiocytosis haematophagic [Unknown]
  - Pseudomonal bacteraemia [Unknown]
  - Pyrexia [Recovering/Resolving]
  - Gamma-glutamyltransferase increased [Unknown]
  - Eosinophilia [Unknown]
  - Staphylococcal bacteraemia [Unknown]
  - Sepsis [Unknown]
  - Nasopharyngitis [Unknown]
  - Alanine aminotransferase increased [Unknown]
  - Skin erosion [Recovering/Resolving]
  - Blood lactate dehydrogenase increased [Unknown]
  - Blood bilirubin increased [Unknown]
  - C-reactive protein increased [Unknown]
  - Eye discharge [Unknown]
  - Lymphadenopathy [Unknown]
  - Generalised erythema [Recovering/Resolving]
  - Oral mucosa erosion [Unknown]
  - Scrotal ulcer [Unknown]
  - Neutrophil count decreased [Unknown]
  - Rash generalised [Unknown]
  - Rash macular [Unknown]
  - Toxic epidermal necrolysis [Unknown]
  - Granulocyte count decreased [Unknown]
  - Ocular hyperaemia [Unknown]
  - Erythema of eyelid [Unknown]
  - Inflammation [Recovering/Resolving]
  - Aspartate aminotransferase increased [Unknown]
  - Blood albumin decreased [Unknown]
  - Scab [Unknown]
  - Rash pustular [Unknown]
  - Hepatic function abnormal [Unknown]
  - Face oedema [Unknown]
  - Protein total decreased [Unknown]
  - White blood cell count decreased [Unknown]
  - Lip erosion [Unknown]

NARRATIVE: CASE EVENT DATE: 201209
